FAERS Safety Report 8144913-6 (Version None)
Quarter: 2012Q1

REPORT INFORMATION
  Report Type: 
  Country: None (occurrence: None)
  Receive Date: 20120217
  Receipt Date: 20120210
  Transmission Date: 20120608
  Serious: Yes (Other)
  Sender: FDA-Public Use
  Company Number: BR-MERCK-1202BRA00014

PATIENT
  Sex: Female
  Weight: 84 kg

DRUGS (3)
  1. COZAAR [Suspect]
     Indication: HYPERTENSION
     Route: 048
     Dates: start: 20110401
  2. PROPRANOLOL HYDROCHLORIDE [Concomitant]
     Indication: HYPERTENSION
     Route: 048
     Dates: start: 20110101
  3. AMLODIPINE BESYLATE [Concomitant]
     Indication: HYPERTENSION
     Route: 048
     Dates: start: 20110101

REACTIONS (3)
  - CAESAREAN SECTION [None]
  - MATERNAL EXPOSURE DURING PREGNANCY [None]
  - BREAST FEEDING [None]
